FAERS Safety Report 8142283 (Version 2)
Quarter: 2016Q4

REPORT INFORMATION
  Report Type: Spontaneous
  Country: US (occurrence: US)
  Receive Date: 20110919
  Receipt Date: 20161209
  Transmission Date: 20170207
  Serious: Yes (Death, Other)
  Sender: FDA-Public Use
  Company Number: US-ROCHE-802709

PATIENT
  Sex: Male

DRUGS (4)
  1. ACCUTANE [Suspect]
     Active Substance: ISOTRETINOIN
     Indication: PRODUCT USED FOR UNKNOWN INDICATION
     Route: 065
     Dates: start: 200501, end: 200507
  2. SOTRET [Suspect]
     Active Substance: ISOTRETINOIN
     Route: 065
  3. SOTRET [Suspect]
     Active Substance: ISOTRETINOIN
     Route: 065
     Dates: start: 200507, end: 200507
  4. SOTRET [Suspect]
     Active Substance: ISOTRETINOIN
     Indication: ACNE
     Route: 065
     Dates: start: 20050124, end: 200507

REACTIONS (5)
  - Anxiety [Unknown]
  - Death [Fatal]
  - Cholangitis sclerosing [Unknown]
  - Inflammatory bowel disease [Unknown]
  - Colitis ulcerative [Unknown]

NARRATIVE: CASE EVENT DATE: 20160513
